FAERS Safety Report 23261336 (Version 2)
Quarter: 2023Q4

REPORT INFORMATION
  Report Type: Report from Study
  Country: GB (occurrence: GB)
  Receive Date: 20231205
  Receipt Date: 20231206
  Transmission Date: 20240109
  Serious: Yes (Hospitalization)
  Sender: FDA-Public Use
  Company Number: GB-002147023-NVSC2023GB254149

PATIENT
  Age: 18 Year
  Sex: Female
  Weight: 59.2 kg

DRUGS (4)
  1. LUTATHERA [Suspect]
     Active Substance: LUTETIUM OXODOTREOTIDE LU-177
     Indication: Gastroenteropancreatic neuroendocrine tumour disease
     Dosage: 7.29 GBQ
     Route: 042
     Dates: start: 20230822
  2. LUTATHERA [Suspect]
     Active Substance: LUTETIUM OXODOTREOTIDE LU-177
     Indication: Phaeochromocytoma
     Dosage: 3.7 GBQ
     Route: 042
     Dates: start: 20231017
  3. LUTATHERA [Suspect]
     Active Substance: LUTETIUM OXODOTREOTIDE LU-177
     Indication: Paraganglion neoplasm
  4. PHENOXYBENZAMINE [Concomitant]
     Active Substance: PHENOXYBENZAMINE
     Indication: Hypertension
     Dosage: 10 MG OD
     Route: 048
     Dates: start: 202211

REACTIONS (1)
  - Device related infection [Recovering/Resolving]

NARRATIVE: CASE EVENT DATE: 20231128
